FAERS Safety Report 6685947-8 (Version None)
Quarter: 2010Q2

REPORT INFORMATION
  Report Type: 
  Country: None (occurrence: None)
  Receive Date: 20100419
  Receipt Date: 20100406
  Transmission Date: 20101027
  Serious: Yes (Other)
  Sender: FDA-Public Use
  Company Number: PHHY2009GB28220

PATIENT
  Sex: Female

DRUGS (3)
  1. EXJADE [Suspect]
     Indication: THALASSAEMIA ALPHA
     Dosage: 1000 MG, UNK
     Route: 048
     Dates: start: 20080901, end: 20081001
  2. EXJADE [Suspect]
     Indication: HAEMOGLOBIN ABNORMAL
  3. FOLIC ACID [Concomitant]
     Indication: BLOOD FOLATE DECREASED

REACTIONS (5)
  - ABDOMINAL PAIN UPPER [None]
  - DEAFNESS [None]
  - FEELING ABNORMAL [None]
  - RASH [None]
  - SERUM FERRITIN INCREASED [None]
